FAERS Safety Report 6383975-3 (Version None)
Quarter: 2009Q4

REPORT INFORMATION
  Report Type: 
  Country: None (occurrence: None)
  Receive Date: 20091001
  Receipt Date: 20090918
  Transmission Date: 20100525
  Serious: Yes (Death)
  Sender: FDA-Public Use
  Company Number: US-MYLANLABS-2009S1016882

PATIENT
  Sex: Female

DRUGS (2)
  1. DOXEPIN HYDROCHLORIDE [Suspect]
     Indication: DEPRESSION
     Route: 048
     Dates: start: 20051027, end: 20061110
  2. OXYCODONE HCL AND ACETAMINOPHEN [Suspect]
     Indication: INTERVERTEBRAL DISC DEGENERATION
     Route: 048
     Dates: start: 20051027, end: 20061110

REACTIONS (1)
  - DEATH [None]
